FAERS Safety Report 9880361 (Version 1)
Quarter: 2014Q1

REPORT INFORMATION
  Report Type: Spontaneous
  Country: US (occurrence: US)
  Receive Date: 20140207
  Receipt Date: 20140207
  Transmission Date: 20141002
  Serious: Yes (Death, Other)
  Sender: FDA-Public Use
  Company Number: US-AMGEN-USASP2014008308

PATIENT
  Sex: 0

DRUGS (34)
  1. FILGRASTIM [Suspect]
     Indication: ACUTE LYMPHOCYTIC LEUKAEMIA
     Dosage: 5 MG/KG, AFTER CHEMO
     Route: 058
  2. FILGRASTIM [Suspect]
     Dosage: 5 MG/KG, STARTED ON DAY 5,
     Route: 058
  3. FILGRASTIM [Suspect]
     Dosage: 5 MG/KG, CONSOLIDATION BLOCK I AND II
     Route: 058
  4. ALLOPURINOL [Suspect]
     Indication: ACUTE LYMPHOCYTIC LEUKAEMIA
     Dosage: 300 MG, DAYS 1-15
     Route: 048
  5. PREDNISONE [Suspect]
     Indication: ACUTE LYMPHOCYTIC LEUKAEMIA
     Dosage: 100 MG/M2, M2, DAYS 1-8 AND 15-21, INDUCTION PHASE 1
     Route: 048
  6. PREDNISONE [Suspect]
     Dosage: 100 MG/M2, DAYS 1-5, CONSOLIDATION BLOCK I
     Route: 048
  7. VINCRISTINE [Suspect]
     Indication: ACUTE LYMPHOCYTIC LEUKAEMIA
     Dosage: 1.5 MG/M2, DAYS 1, 8, 15 AND 22)
     Route: 042
  8. VINCRISTINE [Suspect]
     Dosage: 0.4 MG/M2, DAYS 1-4
     Route: 042
  9. VINCRISTINE [Suspect]
     Dosage: 1.5 MG/M2, DAY 1
     Route: 042
  10. VINCRISTINE [Suspect]
     Dosage: 1.5 MG/M2, CIV ON DAY 1
     Route: 042
  11. CYTARABINE [Suspect]
     Indication: ACUTE LYMPHOCYTIC LEUKAEMIA
     Dosage: 3 G/M2, OVER 3 H FOR 4 DOSES ON DAYS 1 AND 2 (2 IN 1 D)
     Route: 042
  12. METHOTREXATE [Suspect]
     Indication: ACUTE LYMPHOCYTIC LEUKAEMIA
     Dosage: 1 G/M2, OVER 36 H ON DAY 15
     Route: 042
  13. METHOTREXATE [Suspect]
     Dosage: 12 MG, ON DAY 1 OR 20
     Route: 037
  14. METHOTREXATE [Suspect]
     Dosage: 500 MG/M2, OVER 4 H ON DAY 8
     Route: 042
  15. METHOTREXATE [Suspect]
     Dosage: 500 MG/M2,  OVER 4 H ON DAY 8
     Route: 042
  16. METHOTREXATE [Suspect]
     Dosage: 50 MG/M2, FOR 2 YEARS
     Route: 048
  17. LEUCOVORIN /00566702/ [Suspect]
     Indication: ACUTE LYMPHOCYTIC LEUKAEMIA
     Dosage: 30 MG, EVERY 6 HOURS FOR 6 DOSES
     Route: 065
  18. LEUCOVORIN /00566702/ [Suspect]
     Dosage: 30 MG, EVERY 6 H FOR 6 DOSES
     Route: 065
  19. LEUCOVORIN /00566702/ [Suspect]
     Dosage: 30 MG, EVERY 6 H FOR 6 DOSES
     Route: 065
  20. L-ASPARAGINASE [Suspect]
     Indication: ACUTE LYMPHOCYTIC LEUKAEMIA
     Dosage: 10000 UNITS/M2/DOSE ON DAYS 3, 4, 16 AND 17
     Route: 042
  21. DEXAMETHASONE [Suspect]
     Indication: ACUTE LYMPHOCYTIC LEUKAEMIA
     Dosage: 40 MG, QD
     Route: 048
  22. DEXAMETHASONE [Suspect]
     Dosage: 20 MG/M2, ON DAYS 1-5, CONSOLIDATION BLOCK II
     Route: 048
  23. IFOSFAMIDE [Suspect]
     Indication: ACUTE LYMPHOCYTIC LEUKAEMIA
     Dosage: 500 MG, QD ON DAYS 1-4, INDUCTION PHASE II
     Route: 042
  24. IFOSFAMIDE [Suspect]
     Dosage: 1.33 G/M2, ON DAY 1
     Route: 042
  25. MESNA [Suspect]
     Indication: ACUTE LYMPHOCYTIC LEUKAEMIA
     Dosage: 500 MG/M2, QD
     Route: 042
  26. MESNA [Suspect]
     Dosage: 500 MG/M2, CONSOLIDATION BLOCK II
     Route: 042
  27. ADRIAMYCIN /00330901/ [Suspect]
     Indication: ACUTE LYMPHOCYTIC LEUKAEMIA
     Dosage: 12 MG/M2, ON DAYS 1-4 CIV
     Route: 042
  28. CYTOSINE ARABINOSIDE [Suspect]
     Indication: ACUTE LYMPHOCYTIC LEUKAEMIA
     Dosage: 30 MG, ON DAY 1 OR 2
     Route: 037
  29. CYTOSINE ARABINOSIDE [Suspect]
     Dosage: 30 MG/M2, ON DAY 1, CONSOLIDATION BLOCK I
     Route: 042
  30. HYDROCORTISONE [Suspect]
     Indication: ACUTE LYMPHOCYTIC LEUKAEMIA
     Dosage: 15 MG, ON DAY 1 OR 2
     Route: 065
  31. MERKAPTOPURINE [Suspect]
     Indication: ACUTE LYMPHOCYTIC LEUKAEMIA
     Dosage: 100 MG/M2, DAILY ON DAYS 1-5
     Route: 048
  32. VP-16 [Suspect]
     Indication: ACUTE LYMPHOCYTIC LEUKAEMIA
     Dosage: 100 MG/M2, ON DAYS 1 TO 5
     Route: 048
  33. THIOGUANINE [Suspect]
     Indication: ACUTE LYMPHOCYTIC LEUKAEMIA
     Dosage: 100 MG/M2, ON DAYS 1-5, CONSOLIDATION BLOCK II
     Route: 048
  34. THIOGUANINE [Suspect]
     Dosage: 50 MG/M2, QD
     Route: 048

REACTIONS (6)
  - Haemorrhage [Fatal]
  - Bone marrow failure [Fatal]
  - Infection [Fatal]
  - Hepatotoxicity [Unknown]
  - Stomatitis [Unknown]
  - Diarrhoea [Unknown]
